FAERS Safety Report 25246119 (Version 1)
Quarter: 2025Q2

REPORT INFORMATION
  Report Type: Spontaneous
  Country: TW (occurrence: TW)
  Receive Date: 20250428
  Receipt Date: 20250428
  Transmission Date: 20250717
  Serious: Yes (Death, Hospitalization, Other)
  Sender: PFIZER
  Company Number: TW-PFIZER INC-PV202500049550

PATIENT
  Age: 63 Year
  Sex: Male
  Weight: 73 kg

DRUGS (2)
  1. CIBINQO [Suspect]
     Active Substance: ABROCITINIB
     Indication: Dermatitis atopic
     Dosage: 200 MG, 1X/DAY (QD)
     Route: 048
     Dates: start: 20241231, end: 20250312
  2. DUPILUMAB [Suspect]
     Active Substance: DUPILUMAB
     Indication: Dermatitis atopic
     Dates: start: 202411

REACTIONS (4)
  - Acinetobacter infection [Fatal]
  - Candida infection [Fatal]
  - Corynebacterium infection [Fatal]
  - Septic shock [Fatal]

NARRATIVE: CASE EVENT DATE: 20250312
